FAERS Safety Report 17109647 (Version 1)
Quarter: 2019Q4

REPORT INFORMATION
  Report Type: Spontaneous
  Country: US (occurrence: US)
  Receive Date: 20191107
  Receipt Date: 20191107
  Transmission Date: 20200122
  Serious: Yes (Other)
  Sender: FDA-Public Use
  Company Number: None

PATIENT
  Age: 43 Year
  Sex: Male
  Weight: 111.13 kg

DRUGS (1)
  1. BENADRYL ORIGINAL STRENGTH ITCH STOPPING [Suspect]
     Active Substance: DIPHENHYDRAMINE HYDROCHLORIDE\ZINC ACETATE
     Indication: ARTHROPOD STING
     Dosage: APPLY TO AFFECTED AREA 3-4 TIMES PER DAY, 3 TIMES
     Route: 061
     Dates: start: 20190908, end: 20190908

REACTIONS (3)
  - Product dispensing error [None]
  - Expired product administered [None]
  - Drug ineffective [None]

NARRATIVE: CASE EVENT DATE: 20190908
